FAERS Safety Report 23838732 (Version 3)
Quarter: 2024Q3

REPORT INFORMATION
  Report Type: Spontaneous
  Country: FR (occurrence: FR)
  Receive Date: 20240509
  Receipt Date: 20240719
  Transmission Date: 20241017
  Serious: Yes (Hospitalization, Other)
  Sender: BAUSCH AND LOMB
  Company Number: None

PATIENT
  Age: 11 Year
  Sex: Male

DRUGS (11)
  1. HYDROCORTISONE [Suspect]
     Active Substance: HYDROCORTISONE\HYDROCORTISONE ACETATE
     Indication: Leprosy
     Route: 064
     Dates: start: 20111111, end: 20120427
  2. AMITRIPTYLINE HYDROCHLORIDE [Suspect]
     Active Substance: AMITRIPTYLINE HYDROCHLORIDE
     Indication: Leprosy
     Route: 064
     Dates: start: 20110909, end: 201112
  3. PREDNISONE [Suspect]
     Active Substance: PREDNISONE
     Indication: Leprosy
     Route: 064
     Dates: start: 20110909, end: 20111110
  4. HYDROXYCHLOROQUINE DIPHOSPHATE [Suspect]
     Active Substance: HYDROXYCHLOROQUINE DIPHOSPHATE
     Indication: Leprosy
     Route: 064
     Dates: start: 20110909, end: 20120106
  5. LYRICA [Suspect]
     Active Substance: PREGABALIN
     Indication: Leprosy
     Route: 064
     Dates: start: 20110909, end: 201112
  6. ACTONEL [Suspect]
     Active Substance: RISEDRONATE SODIUM
     Indication: Product used for unknown indication
     Route: 064
     Dates: start: 20110909, end: 20111118
  7. LAMPRENE [Suspect]
     Active Substance: CLOFAZIMINE
     Indication: Leprosy
     Route: 064
     Dates: start: 20110909, end: 20120427
  8. CHOLECALCIFEROL [Suspect]
     Active Substance: CHOLECALCIFEROL
     Indication: Product used for unknown indication
     Route: 064
     Dates: start: 20110909, end: 20120106
  9. RIFAMPIN [Suspect]
     Active Substance: RIFAMPIN
     Indication: Leprosy
     Route: 064
     Dates: start: 20110909, end: 20120427
  10. DAPSONE\FERROUS OXALATE [Suspect]
     Active Substance: DAPSONE\FERROUS OXALATE
     Indication: Leprosy
     Route: 064
     Dates: start: 20110909, end: 20120427
  11. ESOMEPRAZOLE MAGNESIUM [Suspect]
     Active Substance: ESOMEPRAZOLE MAGNESIUM
     Indication: Product used for unknown indication
     Route: 064
     Dates: start: 20110909, end: 201112

REACTIONS (4)
  - Foetal growth restriction [Recovered/Resolved]
  - Preterm premature rupture of membranes [Recovered/Resolved]
  - Maternal exposure during pregnancy [Recovered/Resolved]
  - Autism spectrum disorder [Not Recovered/Not Resolved]
